FAERS Safety Report 14788796 (Version 2)
Quarter: 2018Q2

REPORT INFORMATION
  Report Type: Spontaneous
  Country: US (occurrence: US)
  Receive Date: 20180423
  Receipt Date: 20180423
  Transmission Date: 20180711
  Serious: No
  Sender: FDA-Public Use
  Company Number: US-AUROBINDO-AUR-APL-2017-35297

PATIENT
  Sex: Female

DRUGS (1)
  1. MOXIFLOXACIN HYDROCHLORIDE TABLETS 400MG [Suspect]
     Active Substance: MOXIFLOXACIN HYDROCHLORIDE
     Indication: PRODUCT USED FOR UNKNOWN INDICATION
     Dosage: 400 MG, DAILY
     Route: 048
     Dates: start: 20170509, end: 20170514

REACTIONS (6)
  - Tremor [Unknown]
  - Headache [Unknown]
  - Fatigue [Unknown]
  - Pain in extremity [Unknown]
  - Nervousness [Unknown]
  - Gait disturbance [Unknown]

NARRATIVE: CASE EVENT DATE: 20170514
